FAERS Safety Report 19634265 (Version 2)
Quarter: 2023Q1

REPORT INFORMATION
  Report Type: Other
  Country: US (occurrence: None)
  Receive Date: 20210730
  Receipt Date: 20230106
  Transmission Date: 20230418
  Serious: Yes (Other)
  Sender: FDA-Public Use
  Company Number: US-ROCHE-2874637

PATIENT
  Age: 38 Year
  Sex: Male
  Weight: 83.536 kg

DRUGS (3)
  1. OCREVUS [Suspect]
     Active Substance: OCRELIZUMAB
     Indication: Multiple sclerosis
     Dosage: INFUSE 300 MG DAY 1; THEN 300 MG DAY 15, THEN INFUSE 600 MG ONCE IN 6 MONTHS?DATE OF TREATMENT:02/OC
     Route: 042
     Dates: start: 2018
  2. OCREVUS [Suspect]
     Active Substance: OCRELIZUMAB
     Indication: Relapsing multiple sclerosis
  3. MITOTANE [Concomitant]
     Active Substance: MITOTANE
     Indication: Adrenal gland cancer
     Dates: start: 2017

REACTIONS (5)
  - Herpes zoster [Recovered/Resolved]
  - Coronavirus infection [Recovered/Resolved]
  - Oral infection [Recovered/Resolved]
  - Pneumonia [Unknown]
  - Product dose omission issue [Unknown]

NARRATIVE: CASE EVENT DATE: 20200101
